FAERS Safety Report 6464060-9 (Version None)
Quarter: 2009Q4

REPORT INFORMATION
  Report Type: 
  Country: None (occurrence: None)
  Receive Date: 20091130
  Receipt Date: 20091130
  Transmission Date: 20100525
  Serious: Yes (Other)
  Sender: FDA-Public Use
  Company Number: None

PATIENT
  Age: 57 Year
  Sex: Male
  Weight: 63.5036 kg

DRUGS (3)
  1. SEPTOCAINE [Suspect]
     Indication: DENTAL CARIES
     Dates: start: 20090916, end: 20090916
  2. SEPTOCAINE [Suspect]
     Indication: NERVE BLOCK
     Dates: start: 20090916, end: 20090916
  3. SEPTOCAINE [Suspect]
     Indication: TOOTH REPAIR
     Dates: start: 20090916, end: 20090916

REACTIONS (3)
  - AGEUSIA [None]
  - DRY MOUTH [None]
  - HYPOAESTHESIA ORAL [None]
